FAERS Safety Report 10882471 (Version 1)
Quarter: 2015Q1

REPORT INFORMATION
  Report Type: Spontaneous
  Country: ES (occurrence: ES)
  Receive Date: 20150303
  Receipt Date: 20150303
  Transmission Date: 20150721
  Serious: Yes (Disabling)
  Sender: FDA-Public Use
  Company Number: PHHY2015ES022904

PATIENT
  Age: 50 Year
  Sex: Female

DRUGS (2)
  1. SANDIMMUN NEORAL [Suspect]
     Active Substance: CYCLOSPORINE
     Indication: OFF LABEL USE
  2. SANDIMMUN NEORAL [Suspect]
     Active Substance: CYCLOSPORINE
     Indication: NEURODERMATITIS
     Dosage: 100 MG, UNK
     Route: 065
     Dates: end: 20130315

REACTIONS (2)
  - Gastrointestinal pain [Unknown]
  - Lymphoid tissue hyperplasia [Unknown]

NARRATIVE: CASE EVENT DATE: 2013
